FAERS Safety Report 4405809-6 (Version None)
Quarter: 2004Q3

REPORT INFORMATION
  Report Type: 
  Country: None (occurrence: None)
  Receive Date: 20040723
  Receipt Date: 20031223
  Transmission Date: 20050211
  Serious: No
  Sender: FDA-Public Use
  Company Number: US-GLAXOSMITHKLINE-A0444124A

PATIENT
  Age: 74 Year
  Sex: Female

DRUGS (7)
  1. AVANDIA [Suspect]
     Dosage: 4MG PER DAY
     Route: 048
     Dates: start: 20031101
  2. STARLIX [Concomitant]
  3. ZIAC [Concomitant]
  4. AZULFIDINE [Concomitant]
  5. NEBULIZER [Concomitant]
  6. FLOVENT [Concomitant]
  7. SEREVENT [Concomitant]

REACTIONS (2)
  - BLOOD GLUCOSE INCREASED [None]
  - RESPIRATORY TRACT CONGESTION [None]
